FAERS Safety Report 11617238 (Version 3)
Quarter: 2015Q4

REPORT INFORMATION
  Report Type: Report from Study
  Country: CA (occurrence: CA)
  Receive Date: 20151009
  Receipt Date: 20151101
  Transmission Date: 20160304
  Serious: Yes (Other)
  Sender: FDA-Public Use
  Company Number: CA-AMGEN-CANSL2015104289

PATIENT
  Age: 63 Year
  Sex: Female

DRUGS (3)
  1. ADRIAMYCIN [Concomitant]
     Active Substance: DOXORUBICIN HYDROCHLORIDE
     Dosage: UNK
  2. NEUPOGEN [Suspect]
     Active Substance: FILGRASTIM
     Indication: PRODUCT USED FOR UNKNOWN INDICATION
     Dosage: 300 MUG, UNK
     Route: 058
     Dates: start: 20150819, end: 2015
  3. CYCLOPHOSPHAMIDE. [Concomitant]
     Active Substance: CYCLOPHOSPHAMIDE
     Dosage: UNK

REACTIONS (6)
  - Blood pressure decreased [Unknown]
  - Throat tightness [Recovered/Resolved]
  - Facial asymmetry [Unknown]
  - Loss of consciousness [Unknown]
  - Neurogenic shock [Unknown]
  - Chills [Recovered/Resolved]

NARRATIVE: CASE EVENT DATE: 2015
